FAERS Safety Report 8260728 (Version 2)
Quarter: 2013Q3

REPORT INFORMATION
  Report Type: Report from Study
  Country: JP (occurrence: JP)
  Receive Date: 20111123
  Receipt Date: 20130916
  Transmission Date: 20140515
  Serious: Yes (Other)
  Sender: FDA-Public Use
  Company Number: JP-SHIRE-SPV1-2009-01416

PATIENT
  Age: 47 Year
  Sex: Male

DRUGS (7)
  1. AGALSIDASE ALFA [Suspect]
     Indication: FABRY^S DISEASE
     Dosage: 12 MG, 1X/2WKS
     Route: 041
     Dates: start: 20080515
  2. URINORM [Suspect]
     Indication: PRODUCT USED FOR UNKNOWN INDICATION
     Dosage: UNK UNK, UNKNOWN
     Route: 048
  3. DIOVAN [Suspect]
     Indication: PRODUCT USED FOR UNKNOWN INDICATION
     Dosage: 40 MG, UNK
     Route: 048
     Dates: end: 20090430
  4. DIOVAN [Suspect]
     Dosage: 80 MG, 1X/DAY:QD
     Route: 048
     Dates: start: 20090501, end: 20090521
  5. DIOVAN [Suspect]
     Dosage: 40 MG, 1X/DAY:QD
     Route: 048
     Dates: start: 20090522
  6. SODIUM BICARBONATE [Concomitant]
     Indication: PRODUCT USED FOR UNKNOWN INDICATION
     Dosage: 3 G, 1X/DAY:QD
     Route: 048
     Dates: start: 20080811
  7. LASIX                              /00032601/ [Concomitant]
     Indication: PRODUCT USED FOR UNKNOWN INDICATION
     Dosage: 20 MG, 1X/DAY:QD
     Route: 048
     Dates: start: 20090312, end: 20090323

REACTIONS (2)
  - Blood creatinine increased [Not Recovered/Not Resolved]
  - Blood urea increased [Not Recovered/Not Resolved]
